FAERS Safety Report 18617842 (Version 1)
Quarter: 2020Q4

REPORT INFORMATION
  Report Type: Spontaneous
  Country: IT (occurrence: IT)
  Receive Date: 20201215
  Receipt Date: 20201215
  Transmission Date: 20210114
  Serious: Yes (Other)
  Sender: FDA-Public Use
  Company Number: IT-NOVOPROD-772130

PATIENT
  Age: 46 Year
  Sex: Male

DRUGS (4)
  1. ACTRAPID [Suspect]
     Active Substance: INSULIN HUMAN
     Indication: TYPE 1 DIABETES MELLITUS
     Dosage: 36 IU, QD
     Route: 058
     Dates: start: 20140513
  2. TRESIBA [Interacting]
     Active Substance: INSULIN DEGLUDEC
     Indication: TYPE 1 DIABETES MELLITUS
     Dosage: 36 IU, QD
     Route: 058
     Dates: start: 20140513
  3. TRESIBA [Interacting]
     Active Substance: INSULIN DEGLUDEC
     Dosage: UNK (DOSE REDUCED)
     Route: 058
  4. ACTRAPID [Interacting]
     Active Substance: INSULIN HUMAN
     Dosage: UNK (DOSE REDUCED)
     Route: 058

REACTIONS (2)
  - Drug interaction [Recovered/Resolved]
  - Hypoglycaemia [Recovered/Resolved]

NARRATIVE: CASE EVENT DATE: 20201031
